FAERS Safety Report 9257067 (Version 1)
Quarter: 2013Q1

REPORT INFORMATION
  Report Type: Spontaneous
  Country: US (occurrence: None)
  Receive Date: 20121212
  Receipt Date: 20121212
  Transmission Date: 20140127
  Serious: No
  Sender: FDA-Public Use
  Company Number: 1207USA002129

PATIENT
  Sex: 0

DRUGS (3)
  1. VICTRELIS [Suspect]
     Indication: HEPATITIS C
     Route: 048
  2. PEGINTRON [Suspect]
     Indication: HEPATITIS C
     Route: 058
  3. PROCRIT [Concomitant]

REACTIONS (6)
  - Flatulence [None]
  - Abdominal distension [None]
  - Constipation [None]
  - Flushing [None]
  - Erythema [None]
  - Nausea [None]
